FAERS Safety Report 17960537 (Version 1)
Quarter: 2020Q2

REPORT INFORMATION
  Report Type: Spontaneous
  Country: ZA (occurrence: ZA)
  Receive Date: 20200630
  Receipt Date: 20200630
  Transmission Date: 20200714
  Serious: Yes (Hospitalization, Other)
  Sender: FDA-Public Use
  Company Number: ZA-LUPIN PHARMACEUTICALS INC.-2020-03057

PATIENT
  Sex: Female

DRUGS (8)
  1. CIPLAVASC [Suspect]
     Active Substance: AMLODIPINE BESYLATE
     Indication: HYPERTENSION
     Dosage: 5 MILLIGRAM
     Route: 048
  2. BRAZEPAM [Suspect]
     Active Substance: BROMAZEPAM
     Indication: STRESS
     Dosage: 3 MILLIGRAM
     Route: 048
  3. INDAPAMIDE MYLAN [Suspect]
     Active Substance: INDAPAMIDE
     Indication: DIURETIC THERAPY
     Dosage: 2.5 MILLIGRAM
     Route: 048
  4. ZARTAN TABLETS [Suspect]
     Active Substance: LOSARTAN POTASSIUM
     Indication: HYPERTENSION
     Dosage: 50 MILLIGRAM
     Route: 048
  5. DISPRIN CARDIOCARE [Suspect]
     Active Substance: ASPIRIN
     Indication: ANTICOAGULANT THERAPY
     Dosage: 100 MILLIGRAM
     Route: 048
  6. BIO ATENOLOL [Suspect]
     Active Substance: ATENOLOL
     Indication: HYPERTENSION
     Dosage: 50 MILLIGRAM
     Route: 048
  7. DOPAQUEL [Suspect]
     Active Substance: QUETIAPINE
     Indication: DEPRESSION
     Dosage: 25 MILLIGRAM
     Route: 048
  8. CIPLA-SIMVASTATIN [Suspect]
     Active Substance: SIMVASTATIN
     Indication: BLOOD CHOLESTEROL ABNORMAL
     Dosage: 10 MILLIGRAM
     Route: 048

REACTIONS (2)
  - Cystitis [Unknown]
  - COVID-19 [Unknown]
